FAERS Safety Report 9223375 (Version 2)
Quarter: 2013Q2

REPORT INFORMATION
  Report Type: Spontaneous
  Country: JP (occurrence: JP)
  Receive Date: 20130410
  Receipt Date: 20130521
  Transmission Date: 20140414
  Serious: Yes (Hospitalization, Other)
  Sender: FDA-Public Use
  Company Number: JP-ROCHE-1210332

PATIENT
  Age: 73 Year
  Sex: Male

DRUGS (1)
  1. ACTILYSE [Suspect]
     Indication: CEREBRAL INFARCTION
     Dosage: 31.4 MU
     Route: 042
     Dates: start: 200810

REACTIONS (8)
  - Haemorrhagic cerebral infarction [Unknown]
  - Fat embolism [Unknown]
  - Pain in extremity [Unknown]
  - Cyanosis [Recovering/Resolving]
  - Azotaemia [Recovering/Resolving]
  - Eosinophilia [Unknown]
  - Anaemia [Unknown]
  - C-reactive protein increased [Unknown]
